FAERS Safety Report 7306126-7 (Version None)
Quarter: 2011Q1

REPORT INFORMATION
  Report Type: 
  Country: None (occurrence: None)
  Receive Date: 20110209
  Receipt Date: 20110125
  Transmission Date: 20110831
  Serious: Yes (Other)
  Sender: FDA-Public Use
  Company Number: AUR-APL-2011-00332

PATIENT
  Age: 59 Year
  Sex: Female
  Weight: 74.83 kg

DRUGS (2)
  1. NEURONTIN [Suspect]
     Indication: DRUG WITHDRAWAL SYNDROME
     Dosage: 1800MG-ORAL
     Route: 048
     Dates: start: 20100101
  2. BENAZEPRIL [Suspect]

REACTIONS (8)
  - WITHDRAWAL SYNDROME [None]
  - DIZZINESS [None]
  - MANIA [None]
  - UNEVALUABLE EVENT [None]
  - DRUG DEPENDENCE [None]
  - FEELING ABNORMAL [None]
  - CARDIAC DISORDER [None]
  - ANXIETY [None]
